FAERS Safety Report 10036392 (Version 2)
Quarter: 2014Q1

REPORT INFORMATION
  Report Type: Spontaneous
  Country: GB (occurrence: GB)
  Receive Date: 20140325
  Receipt Date: 20140325
  Transmission Date: 20141002
  Serious: Yes (Other)
  Sender: FDA-Public Use
  Company Number: PHFR2013GB005621

PATIENT
  Age: 62 Year
  Sex: Male

DRUGS (1)
  1. GLYCERYL TRINITRATE [Suspect]
     Dosage: 2 DF, PRN
     Route: 060

REACTIONS (4)
  - Oral papule [Recovered/Resolved]
  - Hypoaesthesia teeth [Not Recovered/Not Resolved]
  - Hypoaesthesia oral [Not Recovered/Not Resolved]
  - Application site reaction [Unknown]
